FAERS Safety Report 18326799 (Version 1)
Quarter: 2020Q3

REPORT INFORMATION
  Report Type: Spontaneous
  Country: CH (occurrence: CH)
  Receive Date: 20200929
  Receipt Date: 20200929
  Transmission Date: 20201103
  Serious: Yes (Hospitalization, Other)
  Sender: FDA-Public Use
  Company Number: CH-SA-2020SA259244

PATIENT

DRUGS (3)
  1. IRINOTECAN [Suspect]
     Active Substance: IRINOTECAN
     Indication: COLORECTAL CANCER
     Dosage: UNK
     Dates: start: 20200812
  2. ELOXATIN [Suspect]
     Active Substance: OXALIPLATIN
     Indication: COLORECTAL CANCER
     Dosage: UNK
     Dates: start: 20200812, end: 20200812
  3. CALCIUM FOLINATE;FLUOROURACIL [Suspect]
     Active Substance: FLUOROURACIL\LEUCOVORIN CALCIUM
     Indication: COLORECTAL CANCER
     Dosage: UNK
     Dates: start: 20200812, end: 20200812

REACTIONS (2)
  - Myocarditis [Recovering/Resolving]
  - Cardiotoxicity [Recovering/Resolving]

NARRATIVE: CASE EVENT DATE: 20200812
